FAERS Safety Report 22539250 (Version 1)
Quarter: 2023Q2

REPORT INFORMATION
  Report Type: Spontaneous
  Country: US (occurrence: US)
  Receive Date: 20230609
  Receipt Date: 20230609
  Transmission Date: 20230721
  Serious: Yes (Other)
  Sender: FDA-Public Use
  Company Number: US-CBL-001908

PATIENT
  Age: 52 Year
  Sex: Female

DRUGS (3)
  1. MYCOPHENOLATE MOFETIL [Suspect]
     Active Substance: MYCOPHENOLATE MOFETIL
     Indication: Pemphigus
     Route: 065
  2. RITUXIMAB [Suspect]
     Active Substance: RITUXIMAB
     Indication: Pemphigus
     Dosage: 2 CYCLES ,DAY 0 AND DAY 14
     Route: 042
  3. RITUXIMAB [Suspect]
     Active Substance: RITUXIMAB
     Indication: Pemphigus
     Dosage: THIRD CYCLE
     Route: 042

REACTIONS (4)
  - Rhinorrhoea [Recovering/Resolving]
  - Encephalocele [Recovering/Resolving]
  - Cerebrospinal fluid leakage [Recovering/Resolving]
  - Product use in unapproved indication [Unknown]
